FAERS Safety Report 17017820 (Version 23)
Quarter: 2022Q2

REPORT INFORMATION
  Report Type: Report from Study
  Country: GB (occurrence: GB)
  Receive Date: 20191111
  Receipt Date: 20220511
  Transmission Date: 20220720
  Serious: Yes (Hospitalization, Disabling, Other)
  Sender: FDA-Public Use
  Company Number: GB-SA-2019SA307128

PATIENT
  Age: 8 Year
  Sex: Female
  Weight: 23.35 kg

DRUGS (56)
  1. VANDETANIB [Suspect]
     Active Substance: VANDETANIB
     Indication: Brain stem glioma
     Dosage: 100 MG, QOD (65 MG/M2)
     Route: 065
     Dates: start: 20191009, end: 20191014
  2. VANDETANIB [Suspect]
     Active Substance: VANDETANIB
     Indication: Brain stem glioma
     Dosage: 100 MG, QOD (65 MG/M2)
     Route: 048
     Dates: start: 20191018, end: 20200207
  3. VANDETANIB [Suspect]
     Active Substance: VANDETANIB
     Dosage: 100 MG, QOW
     Route: 065
     Dates: start: 20200212, end: 20200302
  4. VANDETANIB [Suspect]
     Active Substance: VANDETANIB
     Dosage: 65 MG/M2, QOW
     Route: 065
     Dates: start: 20200316, end: 20200420
  5. VANDETANIB [Suspect]
     Active Substance: VANDETANIB
     Dosage: 54 MG, QD (54 MG/M2, QD)
     Route: 048
     Dates: start: 20200212, end: 20200302
  6. VANDETANIB [Suspect]
     Active Substance: VANDETANIB
     Dosage: 100 MG, QOD
     Route: 048
     Dates: start: 20200212, end: 20200302
  7. VANDETANIB [Suspect]
     Active Substance: VANDETANIB
     Dosage: 100 MG, QOD (65 MG/M2)
     Route: 048
     Dates: start: 20191018, end: 20200207
  8. VANDETANIB [Suspect]
     Active Substance: VANDETANIB
     Dosage: 65 MG/M2, QD
     Route: 048
     Dates: start: 20200316, end: 20200420
  9. EVEROLIMUS [Suspect]
     Active Substance: EVEROLIMUS
     Indication: Brain stem glioma
     Dosage: 2.5 MG TUESDAY/THURSDAY/SATURDAY/SUNDAY
     Route: 048
     Dates: start: 20210207
  10. EVEROLIMUS [Suspect]
     Active Substance: EVEROLIMUS
     Dosage: 5 MG, QD MONDAY/WEDNESDAY/FRIDAY
     Route: 048
     Dates: start: 20210207
  11. EVEROLIMUS [Suspect]
     Active Substance: EVEROLIMUS
     Dosage: 5 MG QD MONDAY/WEDNESDAY/FRIDAY
     Route: 048
     Dates: start: 20200212
  12. EVEROLIMUS [Suspect]
     Active Substance: EVEROLIMUS
     Dosage: 2.5 MG, QD TUESDAY/THURSDAY/SATURDAY/SUNDAY
     Route: 048
     Dates: start: 20200212
  13. EVEROLIMUS [Suspect]
     Active Substance: EVEROLIMUS
     Dosage: 5 MG, QD MONDAY,WEDNESDAY AND FRIDAY AND 2.5 MG ON TUESDAY,THURSDAY,SATURDAY AND SUNDAY
     Route: 048
     Dates: start: 20190717, end: 20191014
  14. EVEROLIMUS [Suspect]
     Active Substance: EVEROLIMUS
     Dosage: 5 MG ON MONDAY, WEDNESDAY AND FRIDAY AND 2.5 MG ON TUESDAY, THURSDAY, SATURDAY AND SUNDAY;
     Route: 048
     Dates: start: 20191001, end: 20191014
  15. EVEROLIMUS [Suspect]
     Active Substance: EVEROLIMUS
     Dosage: UNK (5 MG MONDAY/WEDNESDAY/FRIDAY AND 2.5 MG TUESDAY/THURSDAY/SATURDAY/SUNDAY)
     Route: 048
     Dates: start: 20200213
  16. EVEROLIMUS [Suspect]
     Active Substance: EVEROLIMUS
     Dosage: 5 MG, MONDAY/WEDNESDAY/FRIDAY
     Route: 048
     Dates: start: 20190717, end: 20200207
  17. EVEROLIMUS [Suspect]
     Active Substance: EVEROLIMUS
     Dosage: 2.5 MG, QW (SUNDAY)
     Dates: start: 201907, end: 201907
  18. EVEROLIMUS [Suspect]
     Active Substance: EVEROLIMUS
     Dosage: 2.5 MG (TUESDAY/THURSDAY/SATURDAY)
     Dates: end: 20200207
  19. EVEROLIMUS [Suspect]
     Active Substance: EVEROLIMUS
     Dosage: 2.5 MG OF TUESDAY, THURSDAY, SATURDAY AND SUNDAY
     Dates: start: 20190718, end: 20200207
  20. EVEROLIMUS [Suspect]
     Active Substance: EVEROLIMUS
     Dosage: 5 MG MONDAY/WEDNESDAY/FRIDAY AND 2.5 MG TUESDAY
     Dates: start: 20190212
  21. EVEROLIMUS [Suspect]
     Active Substance: EVEROLIMUS
     Dosage: 5 MG MONDAY/WEDNESDAY/FRIDAY AND 2.5 MG TUESDAY/THURSDAY/SATURDAY/SUNDAY
  22. EVEROLIMUS [Suspect]
     Active Substance: EVEROLIMUS
     Dosage: 5MG MONDAY TO SATURDAY AND 2.5 MG SUNDAY
     Route: 048
     Dates: start: 20190717, end: 20191014
  23. EVEROLIMUS [Suspect]
     Active Substance: EVEROLIMUS
     Dosage: 2.5 MILLIGRAM (5 MG MONDAY TO SATURDAY)
     Route: 048
     Dates: start: 20190717
  24. DEXAMETHASONE [Suspect]
     Active Substance: DEXAMETHASONE
     Indication: Product used for unknown indication
     Dosage: 9.2 MG, QD (4.6 MG)
     Route: 048
     Dates: start: 20200207, end: 20200221
  25. DEXAMETHASONE [Suspect]
     Active Substance: DEXAMETHASONE
     Dosage: 3.5 MG, QD
     Route: 048
     Dates: start: 20200212
  26. DEXAMETHASONE [Suspect]
     Active Substance: DEXAMETHASONE
     Dosage: 1.6 MG, QD
     Route: 048
     Dates: start: 20200215, end: 20200221
  27. DEXAMETHASONE [Suspect]
     Active Substance: DEXAMETHASONE
     Dosage: 3.5 MG, Q12H
     Route: 048
     Dates: start: 20210210
  28. DEXAMETHASONE [Suspect]
     Active Substance: DEXAMETHASONE
     Dosage: UNK (VARIABLE 4MG BD WEANED TO 0.5MG SECOND DAILY)
     Route: 065
     Dates: start: 20191101, end: 20200221
  29. DEXAMETHASONE [Suspect]
     Active Substance: DEXAMETHASONE
     Dosage: 7 MG, QD
     Route: 048
  30. DEXAMETHASONE [Suspect]
     Active Substance: DEXAMETHASONE
     Dosage: 1.6 MG, QD
     Route: 048
     Dates: start: 20210215, end: 20210221
  31. DEXAMETHASONE [Suspect]
     Active Substance: DEXAMETHASONE
     Dosage: 4.6 MG
     Route: 048
     Dates: start: 20200207, end: 20200221
  32. DEXAMETHASONE [Suspect]
     Active Substance: DEXAMETHASONE
     Dosage: 3.5 MG
     Route: 048
     Dates: start: 20210210
  33. DEXAMETHASONE [Suspect]
     Active Substance: DEXAMETHASONE
     Dosage: UNK, QOW
  34. DEXAMETHASONE [Suspect]
     Active Substance: DEXAMETHASONE
     Dosage: 1.6 MG
     Route: 048
     Dates: start: 20210215, end: 20210221
  35. RANITIDINE [Suspect]
     Active Substance: RANITIDINE
     Indication: Gastrooesophageal reflux disease
     Dosage: 50 MG, BID
     Route: 048
     Dates: start: 20191018
  36. RANITIDINE [Suspect]
     Active Substance: RANITIDINE
     Dosage: UNK UNK, BID
     Route: 048
  37. LOPERAMIDE [Suspect]
     Active Substance: LOPERAMIDE
     Indication: Diarrhoea
     Dosage: 2 MG, Q4D (2 MG ONE CAPSULE UP TO FOUR TIMES A DAY)
     Route: 065
  38. LOPERAMIDE [Suspect]
     Active Substance: LOPERAMIDE
     Indication: Diarrhoea
  39. LOPERAMIDE [Suspect]
     Active Substance: LOPERAMIDE
     Indication: Prophylaxis
  40. LANSOPRAZOLE [Suspect]
     Active Substance: LANSOPRAZOLE
     Indication: Product used for unknown indication
     Dosage: UNK
     Route: 065
  41. ACETAMINOPHEN [Suspect]
     Active Substance: ACETAMINOPHEN
     Dosage: UNK UNK, QD PM
     Route: 048
  42. COTRIMOXAZOLE [Concomitant]
     Active Substance: SULFAMETHOXAZOLE\TRIMETHOPRIM
     Indication: Product used for unknown indication
     Dosage: 360 MG 720 MG, 1X/DAY (360 MG BD ON SAT/SUN ONLY)
     Route: 065
  43. COTRIMOXAZOLE [Concomitant]
     Active Substance: SULFAMETHOXAZOLE\TRIMETHOPRIM
     Dosage: 360 MG, BID (7.5ML) ON SATURDAY AND SUNDAY
     Route: 048
  44. COTRIMOXAZOLE [Concomitant]
     Active Substance: SULFAMETHOXAZOLE\TRIMETHOPRIM
     Dosage: UNK MG
     Route: 065
  45. COTRIMOXAZOLE [Concomitant]
     Active Substance: SULFAMETHOXAZOLE\TRIMETHOPRIM
     Dosage: UNK
     Route: 065
  46. COTRIMOXAZOLE [Concomitant]
     Active Substance: SULFAMETHOXAZOLE\TRIMETHOPRIM
     Dosage: 360 MG
     Route: 065
  47. COTRIMOXAZOLE [Concomitant]
     Active Substance: SULFAMETHOXAZOLE\TRIMETHOPRIM
     Dosage: 360 MG BD ON SAT/SUN ONLY;
     Route: 065
  48. COTRIMOXAZOLE [Concomitant]
     Active Substance: SULFAMETHOXAZOLE\TRIMETHOPRIM
     Route: 065
  49. COTRIMOXAZOLE [Concomitant]
     Active Substance: SULFAMETHOXAZOLE\TRIMETHOPRIM
     Dosage: 360 MG
     Route: 065
  50. COTRIMOXAZOLE [Concomitant]
     Active Substance: SULFAMETHOXAZOLE\TRIMETHOPRIM
     Dosage: 4MG; BID (VARIABLE, 4 MG WEANED TO 0.5 MG UNK)
     Dates: start: 20191101, end: 20200221
  51. COTRIMOXAZOLE [Concomitant]
     Active Substance: SULFAMETHOXAZOLE\TRIMETHOPRIM
     Dosage: 360 G
     Route: 048
  52. DEXAMETHASONE [Concomitant]
     Active Substance: DEXAMETHASONE
     Dosage: 4 MG
     Route: 065
     Dates: start: 20191101, end: 20200221
  53. RANITIDINE [Concomitant]
     Active Substance: RANITIDINE
     Dosage: 50 MG, Q12H
     Dates: start: 20191018
  54. LANSOPRAZOLE [Concomitant]
     Active Substance: LANSOPRAZOLE
     Indication: Product used for unknown indication
  55. LOPERAMIDE [Concomitant]
     Active Substance: LOPERAMIDE
     Indication: Prophylaxis
     Dosage: 2 MG, 1 CAPSULE UPTO 4 TIMES A DAY
  56. ACETAMINOPHEN [Concomitant]
     Active Substance: ACETAMINOPHEN
     Indication: Product used for unknown indication
     Dosage: UNK, PRN

REACTIONS (38)
  - Hemiparesis [Recovered/Resolved]
  - Ataxia [Recovered/Resolved]
  - Ataxia [Not Recovered/Not Resolved]
  - Facial paralysis [Recovered/Resolved]
  - Facial paralysis [Not Recovered/Not Resolved]
  - Neutrophil count decreased [Recovered/Resolved]
  - Blood cholesterol increased [Recovered/Resolved]
  - Flatulence [Recovered/Resolved]
  - Abdominal distension [Recovered/Resolved]
  - Lymphocyte count decreased [Not Recovered/Not Resolved]
  - White blood cell count decreased [Not Recovered/Not Resolved]
  - Blood triglycerides increased [Unknown]
  - Alanine aminotransferase increased [Recovered/Resolved]
  - Disease progression [Unknown]
  - Blood creatinine increased [Recovered/Resolved]
  - Hypertension [Recovered/Resolved]
  - Electrocardiogram QT prolonged [Recovered/Resolved]
  - Brain stem glioma [Unknown]
  - Medication error [Unknown]
  - Reflux gastritis [Recovered/Resolved]
  - Hypophagia [Not Recovered/Not Resolved]
  - Ocular hyperaemia [Recovered/Resolved]
  - Hypophosphataemia [Recovered/Resolved]
  - Myoclonus [Recovered/Resolved]
  - Malignant neoplasm progression [Unknown]
  - Gastrooesophageal reflux disease [Recovered/Resolved]
  - Neutrophil count decreased [Recovered/Resolved]
  - Brain stem glioma [Unknown]
  - Blood creatinine increased [Unknown]
  - Blood cholesterol increased [Not Recovered/Not Resolved]
  - Facial paralysis [Recovered/Resolved]
  - Mucosal inflammation [Recovered/Resolved]
  - Mucosal inflammation [Recovered/Resolved]
  - Stomatitis [Recovered/Resolved]
  - Neutrophil count decreased [Recovered/Resolved]
  - Ocular hyperaemia [Recovered/Resolved]
  - Product use in unapproved indication [Unknown]
  - Off label use [Unknown]

NARRATIVE: CASE EVENT DATE: 20190111
